FAERS Safety Report 15340466 (Version 3)
Quarter: 2018Q4

REPORT INFORMATION
  Report Type: Spontaneous
  Country: JP (occurrence: JP)
  Receive Date: 20180831
  Receipt Date: 20181219
  Transmission Date: 20190204
  Serious: Yes (Hospitalization)
  Sender: FDA-Public Use
  Company Number: JP-EISAI MEDICAL RESEARCH-EC-2018-044610

PATIENT
  Age: 81 Year
  Sex: Female
  Weight: 47 kg

DRUGS (2)
  1. LENVIMA [Suspect]
     Active Substance: LENVATINIB
     Route: 048
     Dates: start: 20180817, end: 20180914
  2. LENVIMA [Suspect]
     Active Substance: LENVATINIB
     Indication: HEPATOCELLULAR CARCINOMA
     Route: 048
     Dates: end: 20180816

REACTIONS (1)
  - Haematochezia [Recovering/Resolving]

NARRATIVE: CASE EVENT DATE: 20180817
